FAERS Safety Report 14911120 (Version 1)
Quarter: 2018Q2

REPORT INFORMATION
  Report Type: Report from Study
  Country: ZA (occurrence: ZA)
  Receive Date: 20180518
  Receipt Date: 20180518
  Transmission Date: 20180711
  Serious: Yes (Hospitalization, Other)
  Sender: FDA-Public Use
  Company Number: ZA-CIPLA (EU) LIMITED-2018ZA17892

PATIENT

DRUGS (5)
  1. ABACAVIR. [Concomitant]
     Active Substance: ABACAVIR
     Indication: PERINATAL HIV INFECTION
     Dosage: UNKNOWN
     Route: 065
  2. EFAVIRENZ. [Suspect]
     Active Substance: EFAVIRENZ
     Dosage: 200 MG, UNK, ONCE A DAY
     Route: 065
  3. EFAVIRENZ. [Suspect]
     Active Substance: EFAVIRENZ
     Indication: PERINATAL HIV INFECTION
     Dosage: PRESCRIBED ACCORDING TO STANDARD RECOMMENDED WEIGHT-BASED DOSING
     Route: 065
  4. EFAVIRENZ. [Suspect]
     Active Substance: EFAVIRENZ
     Dosage: 300 MG, UNK, ONCE A DAY
     Route: 065
  5. STAVUDINE. [Concomitant]
     Active Substance: STAVUDINE
     Indication: PERINATAL HIV INFECTION
     Dosage: UNKNOWN
     Route: 065

REACTIONS (5)
  - Toxicity to various agents [Recovered/Resolved]
  - Vomiting [Unknown]
  - Abdominal pain upper [Unknown]
  - Antisocial behaviour [Recovered/Resolved]
  - Nervous system disorder [Recovered/Resolved]
